FAERS Safety Report 19473560 (Version 1)
Quarter: 2021Q2

REPORT INFORMATION
  Report Type: Spontaneous
  Country: JP (occurrence: JP)
  Receive Date: 20210629
  Receipt Date: 20210629
  Transmission Date: 20210717
  Serious: Yes (Hospitalization, Other)
  Sender: FDA-Public Use
  Company Number: JP-009507513-2106JPN002242J

PATIENT
  Age: 72 Year
  Sex: Male

DRUGS (17)
  1. DILTIAZEM HYDROCHLORIDE R [Concomitant]
     Active Substance: DILTIAZEM HYDROCHLORIDE
     Dosage: 200 MILLIGRAM
     Route: 065
  2. AZOSEMIDE [Concomitant]
     Active Substance: AZOSEMIDE
     Dosage: 60 MILLIGRAM
     Route: 065
  3. FEBUXOSTAT. [Concomitant]
     Active Substance: FEBUXOSTAT
     Dosage: 10 MILLIGRAM
     Route: 065
  4. TENELIGLIPTIN HYDROBROMIDE [Concomitant]
     Active Substance: TENELIGLIPTIN HYDROBROMIDE ANHYDROUS
     Dosage: 20 MILLIGRAM
     Route: 065
  5. TOLVAPTAN [Concomitant]
     Active Substance: TOLVAPTAN
     Dosage: 3.75 UNK
     Route: 065
  6. FUROSEMIDE. [Concomitant]
     Active Substance: FUROSEMIDE
     Dosage: 200 MILLIGRAM
     Route: 041
  7. EMPAGLIFLOZIN [Concomitant]
     Active Substance: EMPAGLIFLOZIN
     Dosage: 10 MILLIGRAM
     Route: 065
  8. TORASEMIDE [Concomitant]
     Active Substance: TORSEMIDE
     Dosage: 8 MILLIGRAM
     Route: 065
  9. INSULIN LISPRO [Concomitant]
     Active Substance: INSULIN LISPRO
     Dosage: UNK
     Route: 065
  10. TOLVAPTAN [Concomitant]
     Active Substance: TOLVAPTAN
     Dosage: 7.5 MILLIGRAM
     Route: 065
  11. NIFEDIPINE. [Concomitant]
     Active Substance: NIFEDIPINE
     Dosage: 80 MILLIGRAM
     Route: 065
  12. ATORVASTATIN [ATORVASTATIN CALCIUM TRIHYDRATE] [Concomitant]
     Active Substance: ATORVASTATIN CALCIUM TRIHYDRATE
     Dosage: 10 MILLIGRAM
     Route: 065
  13. NICORANDIL [Concomitant]
     Active Substance: NICORANDIL
     Dosage: 15 MILLIGRAM
     Route: 065
  14. JANUVIA [Suspect]
     Active Substance: SITAGLIPTIN PHOSPHATE
     Indication: DIABETES MELLITUS
     Dosage: 50 MILLIGRAM
     Route: 048
  15. CLOPIDOGREL [CLOPIDOGREL BISULFATE] [Concomitant]
     Active Substance: CLOPIDOGREL BISULFATE
     Dosage: 75 MILLIGRAM
     Route: 065
  16. AZILSARTAN [Concomitant]
     Active Substance: AZILSARTAN KAMEDOXOMIL
     Dosage: 40 MILLIGRAM
     Route: 065
  17. DOPAMINE HYDROCHLORIDE. [Concomitant]
     Active Substance: DOPAMINE HYDROCHLORIDE
     Dosage: ABOUT 3 GAMMA
     Route: 065

REACTIONS (3)
  - Oliguria [Unknown]
  - Altered state of consciousness [Recovering/Resolving]
  - Oedema [Unknown]
